FAERS Safety Report 8462698-0 (Version None)
Quarter: 2012Q2

REPORT INFORMATION
  Report Type: 
  Country: None (occurrence: None)
  Receive Date: 20120625
  Receipt Date: 20120620
  Transmission Date: 20120825
  Serious: Yes (Other)
  Sender: FDA-Public Use
  Company Number: US-ROCHE-1051951

PATIENT
  Sex: Female

DRUGS (2)
  1. PEGASYS [Suspect]
     Indication: HEPATITIS C
     Route: 058
  2. COPEGUS [Suspect]
     Indication: HEPATITIS C
     Route: 048

REACTIONS (9)
  - WEIGHT DECREASED [None]
  - DRUG INTOLERANCE [None]
  - PANCYTOPENIA [None]
  - DEPRESSION [None]
  - ANAEMIA [None]
  - FATIGUE [None]
  - DECREASED APPETITE [None]
  - ASTHENIA [None]
  - DYSGEUSIA [None]
